FAERS Safety Report 8821102 (Version 1)
Quarter: 2012Q4

REPORT INFORMATION
  Report Type: Report from Study
  Country: US (occurrence: US)
  Receive Date: 20121002
  Receipt Date: 20121002
  Transmission Date: 20130627
  Serious: Yes (Hospitalization)
  Sender: FDA-Public Use
  Company Number: US-GLAXOSMITHKLINE-A0995819A

PATIENT
  Age: 57 Year
  Sex: Male
  Weight: 72 kg

DRUGS (14)
  1. PAZOPANIB [Suspect]
     Indication: SARCOMA
     Dosage: 800MG Per day
     Route: 048
     Dates: start: 20120817
  2. ACYCLOVIR [Concomitant]
     Route: 048
  3. DEXAMETHASONE [Concomitant]
     Route: 048
  4. FENTANYL PATCH [Concomitant]
     Route: 062
  5. FUROSEMIDE [Concomitant]
     Route: 048
  6. HYDROMORPHONE [Concomitant]
     Route: 048
  7. LORAZEPAM [Concomitant]
     Route: 048
  8. NAPROXEN [Concomitant]
     Route: 048
  9. OMEPRAZOLE [Concomitant]
     Route: 048
  10. POLYETHYLENE GLYCOL [Concomitant]
     Route: 048
  11. POTASSIUM CHLORIDE [Concomitant]
     Route: 048
  12. PROCHLORPERAZINE [Concomitant]
     Route: 048
  13. SENNA CONCENTRATE + DOCUSATE SODIUM [Concomitant]
     Route: 048
  14. TRAZODONE [Concomitant]
     Route: 048

REACTIONS (2)
  - Dyspnoea [Unknown]
  - Ascites [Unknown]
